FAERS Safety Report 13738489 (Version 1)
Quarter: 2017Q3

REPORT INFORMATION
  Report Type: Spontaneous
  Country: US (occurrence: US)
  Receive Date: 20170710
  Receipt Date: 20170710
  Transmission Date: 20171127
  Serious: Yes (Hospitalization)
  Sender: FDA-Public Use
  Company Number: US-SAOL THERAPEUTICS-2016SAO01316

PATIENT
  Age: 56 Year
  Sex: Male

DRUGS (2)
  1. BACLOFEN. [Suspect]
     Active Substance: BACLOFEN
     Indication: MUSCLE SPASTICITY
     Dosage: UNK
     Dates: start: 2016, end: 20161225
  2. BACLOFEN. [Suspect]
     Active Substance: BACLOFEN
     Dosage: 50 ?G, \DAY
     Dates: start: 20161225

REACTIONS (4)
  - Therapeutic response decreased [Unknown]
  - Pyrexia [Unknown]
  - Hypotonia [Unknown]
  - Overdose [Unknown]

NARRATIVE: CASE EVENT DATE: 2016
